FAERS Safety Report 6675716-7 (Version None)
Quarter: 2010Q2

REPORT INFORMATION
  Report Type: 
  Country: None (occurrence: None)
  Receive Date: 20100409
  Receipt Date: 20100408
  Transmission Date: 20101027
  Serious: Yes (Hospitalization)
  Sender: FDA-Public Use
  Company Number: GB-ABBOTT-09P-167-0595136-00

PATIENT
  Sex: Female

DRUGS (7)
  1. HUMIRA [Suspect]
     Indication: RHEUMATOID ARTHRITIS
     Dosage: TEMPORARY STOP WHILE IN HOSPITAL NO DATES GIVEN
     Route: 058
     Dates: start: 20050708, end: 20090623
  2. DICLOFENAC SODIUM [Concomitant]
     Indication: DRUG USE FOR UNKNOWN INDICATION
     Dosage: BASELINE MEDICATION 10-DEC-2002
     Dates: start: 20021210
  3. PARACETAMOL [Concomitant]
     Indication: DRUG USE FOR UNKNOWN INDICATION
  4. TRAMADOL HCL [Concomitant]
     Indication: DRUG USE FOR UNKNOWN INDICATION
  5. LOPERAMIDE [Concomitant]
     Indication: DRUG USE FOR UNKNOWN INDICATION
  6. OMEPRAZOLE [Concomitant]
     Indication: DRUG USE FOR UNKNOWN INDICATION
  7. METHOTREXATE [Concomitant]
     Indication: DRUG USE FOR UNKNOWN INDICATION

REACTIONS (7)
  - C-REACTIVE PROTEIN INCREASED [None]
  - COMPUTERISED TOMOGRAM ABDOMEN ABNORMAL [None]
  - DIARRHOEA [None]
  - DIVERTICULITIS [None]
  - RHEUMATOID ARTHRITIS [None]
  - VOMITING [None]
  - WEIGHT DECREASED [None]
